FAERS Safety Report 11226256 (Version 2)
Quarter: 2025Q2

REPORT INFORMATION
  Report Type: Report from Study
  Country: NZ (occurrence: NZ)
  Receive Date: 20150629
  Receipt Date: 20250429
  Transmission Date: 20250716
  Serious: Yes (Other)
  Sender: AUROBINDO
  Company Number: NZ-MYLANLABS-2015M1021664

PATIENT
  Age: 35 Year
  Sex: Female

DRUGS (1)
  1. PAROXETINE [Suspect]
     Active Substance: PAROXETINE
     Indication: Product used for unknown indication
     Route: 065

REACTIONS (3)
  - Aggression [Unknown]
  - Alcohol interaction [Unknown]
  - Alcohol poisoning [Unknown]
